FAERS Safety Report 5914305-6 (Version None)
Quarter: 2008Q4

REPORT INFORMATION
  Report Type: 
  Country: None (occurrence: None)
  Receive Date: 20081009
  Receipt Date: 20080927
  Transmission Date: 20090506
  Serious: Yes (Other)
  Sender: FDA-Public Use
  Company Number: US-PFIZER INC-2008074757

PATIENT
  Sex: Female
  Weight: 45.4 kg

DRUGS (6)
  1. CHANTIX [Suspect]
     Indication: SMOKING CESSATION THERAPY
     Route: 048
     Dates: start: 20080601, end: 20080801
  2. CHANTIX [Suspect]
     Indication: NICOTINE DEPENDENCE
  3. SITAGLIPTIN [Concomitant]
     Dates: start: 20080819
  4. LANTUS [Concomitant]
     Dates: start: 20080305
  5. HUMALOG [Concomitant]
     Dates: start: 20080305
  6. XOPENEX [Concomitant]
     Dates: start: 20080709

REACTIONS (2)
  - BLOOD GLUCOSE ABNORMAL [None]
  - DIABETES MELLITUS [None]
